FAERS Safety Report 6720230-3 (Version None)
Quarter: 2010Q2

REPORT INFORMATION
  Report Type: 
  Country: None (occurrence: None)
  Receive Date: 20100506
  Receipt Date: 20100426
  Transmission Date: 20101027
  Serious: Yes (Other)
  Sender: FDA-Public Use
  Company Number: CTI_01182_2010

PATIENT
  Age: 28 Year
  Sex: Male

DRUGS (1)
  1. SPECTRACEF [Suspect]
     Indication: DRUG USE FOR UNKNOWN INDICATION
     Dosage: (DF ORAL)
     Route: 048
     Dates: start: 20090501

REACTIONS (2)
  - SPONTANEOUS HAEMATOMA [None]
  - THROMBOCYTOPENIA [None]
